FAERS Safety Report 21660547 (Version 2)
Quarter: 2025Q1

REPORT INFORMATION
  Report Type: Report from Study
  Country: US (occurrence: US)
  Receive Date: 20221130
  Receipt Date: 20250116
  Transmission Date: 20250409
  Serious: No
  Sender: MERCK
  Company Number: US-009507513-2211USA003797

PATIENT
  Age: 1 Year
  Sex: Female

DRUGS (1)
  1. BELSOMRA [Suspect]
     Active Substance: SUVOREXANT
     Route: 048
     Dates: end: 20220802

REACTIONS (4)
  - Poor quality sleep [Not Recovered/Not Resolved]
  - Product use issue [Unknown]
  - Product dose omission issue [Unknown]
  - Product dose omission issue [Unknown]

NARRATIVE: CASE EVENT DATE: 20020802
